FAERS Safety Report 16715801 (Version 1)
Quarter: 2019Q3

REPORT INFORMATION
  Report Type: Spontaneous
  Country: IT (occurrence: IT)
  Receive Date: 20190819
  Receipt Date: 20190819
  Transmission Date: 20191005
  Serious: Yes (Other)
  Sender: FDA-Public Use
  Company Number: IT-PFIZER INC-2019353967

PATIENT
  Age: 48 Year
  Sex: Female
  Weight: 51 kg

DRUGS (3)
  1. LETROZOLE. [Concomitant]
     Active Substance: LETROZOLE
     Indication: METAPLASTIC BREAST CARCINOMA
     Dosage: 2.5 MG, 1X/DAY
     Route: 048
     Dates: start: 20190202
  2. IBRANCE [Suspect]
     Active Substance: PALBOCICLIB
     Indication: METAPLASTIC BREAST CARCINOMA
     Dosage: 125 MG, CYCLIC
     Route: 048
     Dates: start: 20190221
  3. ENANTONE LP [Concomitant]
     Active Substance: LEUPROLIDE ACETATE
     Indication: METAPLASTIC BREAST CARCINOMA
     Dosage: 3.75 MG, UNK
     Dates: start: 20190202

REACTIONS (6)
  - Hot flush [Not Recovered/Not Resolved]
  - Mucosal inflammation [Not Recovered/Not Resolved]
  - Dry eye [Not Recovered/Not Resolved]
  - Neutropenia [Not Recovered/Not Resolved]
  - Leukopenia [Not Recovered/Not Resolved]
  - Asthenia [Not Recovered/Not Resolved]

NARRATIVE: CASE EVENT DATE: 20190802
